FAERS Safety Report 23073594 (Version 1)
Quarter: 2023Q4

REPORT INFORMATION
  Report Type: Spontaneous
  Country: EU (occurrence: None)
  Receive Date: 20231017
  Receipt Date: 20231017
  Transmission Date: 20240110
  Serious: Yes (Death)
  Sender: FDA-Public Use
  Company Number: None

PATIENT

DRUGS (4)
  1. BUPRENORPHINE HYDROCHLORIDE [Suspect]
     Active Substance: BUPRENORPHINE HYDROCHLORIDE
  2. MORPHINE SULFATE [Suspect]
     Active Substance: MORPHINE SULFATE
  3. DRONABINOL [Suspect]
     Active Substance: DRONABINOL
  4. ALCOHOL [Suspect]
     Active Substance: ALCOHOL

REACTIONS (1)
  - Death [Fatal]
